FAERS Safety Report 8594557-7 (Version None)
Quarter: 2012Q3

REPORT INFORMATION
  Report Type: 
  Country: None (occurrence: None)
  Receive Date: 20120815
  Receipt Date: 20120807
  Transmission Date: 20120928
  Serious: Yes (Hospitalization, Other)
  Sender: FDA-Public Use
  Company Number: US-ELI_LILLY_AND_COMPANY-US200805003020

PATIENT
  Sex: Female
  Weight: 65.76 kg

DRUGS (14)
  1. CYMBALTA [Suspect]
     Indication: FIBROMYALGIA
     Dosage: 30 MG, DAILY (1/D)
     Dates: start: 20050101
  2. CYMBALTA [Suspect]
     Dosage: 60 MG, DAILY (1/D)
  3. PILOCARPINE [Concomitant]
     Dosage: 5 MG, UNK
  4. CYMBALTA [Suspect]
     Dosage: 120 MG, DAILY (1/D)
     Route: 048
     Dates: start: 20070101
  5. FLEXERIL [Concomitant]
     Dosage: 10 MG, UNK
  6. ULTRAM [Concomitant]
     Dosage: UNK
  7. ANTIDEPRESSANTS [Concomitant]
  8. EVOXAC [Concomitant]
  9. SYNTHROID [Concomitant]
  10. CYMBALTA [Suspect]
     Dosage: 90 MG, DAILY (1/D)
  11. PLAQUENIL [Concomitant]
     Dosage: 400 MG, UNK
  12. AMITIZA [Concomitant]
  13. CYMBALTA [Suspect]
     Dosage: 60 MG, BID
  14. NEXIUM [Concomitant]

REACTIONS (40)
  - MENSTRUATION IRREGULAR [None]
  - DRY EYE [None]
  - INSOMNIA [None]
  - INTERVERTEBRAL DISC PROTRUSION [None]
  - JOINT SWELLING [None]
  - PAIN [None]
  - FIBROMYALGIA [None]
  - CARDIAC ARREST [None]
  - HOT FLUSH [None]
  - DRY MOUTH [None]
  - MEDICATION ERROR [None]
  - DYSPNOEA [None]
  - MUSCLE SPASMS [None]
  - SUICIDAL IDEATION [None]
  - ARTHRALGIA [None]
  - CONSTIPATION [None]
  - NAUSEA [None]
  - GALLBLADDER OPERATION [None]
  - DRUG INEFFECTIVE [None]
  - FEELING OF BODY TEMPERATURE CHANGE [None]
  - HEART RATE INCREASED [None]
  - ANXIETY [None]
  - PROCEDURAL COMPLICATION [None]
  - VOMITING [None]
  - CHILLS [None]
  - WEIGHT DECREASED [None]
  - PANIC REACTION [None]
  - AGITATION [None]
  - FEELING COLD [None]
  - ARRHYTHMIA [None]
  - HYPERHIDROSIS [None]
  - GASTROINTESTINAL DISORDER [None]
  - PAIN IN EXTREMITY [None]
  - WEIGHT INCREASED [None]
  - DISTURBANCE IN ATTENTION [None]
  - WITHDRAWAL SYNDROME [None]
  - FEELING ABNORMAL [None]
  - NIGHTMARE [None]
  - ABDOMINAL PAIN [None]
  - PALPITATIONS [None]
